FAERS Safety Report 17293710 (Version 1)
Quarter: 2020Q1

REPORT INFORMATION
  Report Type: Spontaneous
  Country: US (occurrence: US)
  Receive Date: 20200121
  Receipt Date: 20200121
  Transmission Date: 20200409
  Serious: No
  Sender: FDA-Public Use
  Company Number: US-SA-2020SA016108

PATIENT
  Age: 49 Year
  Sex: Male

DRUGS (6)
  1. EPIPEN [Concomitant]
     Active Substance: EPINEPHRINE
  2. VITAMIN B1 [Concomitant]
     Active Substance: THIAMINE HYDROCHLORIDE
  3. VITAMIN E NOS [Concomitant]
     Active Substance: .ALPHA.-TOCOPHEROL
  4. ONDANSETRON [Concomitant]
     Active Substance: ONDANSETRON
  5. MULTIVITAMINS [VITAMINS NOS] [Concomitant]
     Active Substance: VITAMINS
  6. DUPIXENT [Suspect]
     Active Substance: DUPILUMAB
     Indication: ASTHMA
     Dosage: 300 MG, QOW
     Route: 058
     Dates: start: 20191110

REACTIONS (3)
  - Dyspnoea [Unknown]
  - Dizziness [Unknown]
  - Arthropod bite [Unknown]
